FAERS Safety Report 7677739-8 (Version None)
Quarter: 2011Q3

REPORT INFORMATION
  Report Type: 
  Country: None (occurrence: None)
  Receive Date: 20110811
  Receipt Date: 20110801
  Transmission Date: 20111222
  Serious: Yes (Hospitalization)
  Sender: FDA-Public Use
  Company Number: US-JNJFOC-20110207193

PATIENT
  Sex: Male
  Weight: 49.8 kg

DRUGS (3)
  1. MERCAPTOPURINE [Concomitant]
  2. MESALAMINE [Concomitant]
  3. INFLIXIMAB, RECOMBINANT [Suspect]
     Indication: PROPHYLAXIS
     Route: 042
     Dates: start: 20100903

REACTIONS (1)
  - INTESTINAL OBSTRUCTION [None]
